FAERS Safety Report 8129043-1 (Version None)
Quarter: 2012Q1

REPORT INFORMATION
  Report Type: 
  Country: None (occurrence: None)
  Receive Date: 20120210
  Receipt Date: 20110816
  Transmission Date: 20120608
  Serious: No
  Sender: FDA-Public Use
  Company Number: US-BRISTOL-MYERS SQUIBB COMPANY-15975485

PATIENT

DRUGS (1)
  1. ORENCIA [Suspect]
     Dosage: NO OF INFUSION-3.1ST INF ON DAY 15,3RD INF ON DAY 43.

REACTIONS (1)
  - STOMATITIS [None]
